FAERS Safety Report 22053782 (Version 5)
Quarter: 2024Q2

REPORT INFORMATION
  Report Type: Spontaneous
  Country: CA (occurrence: CA)
  Receive Date: 20230302
  Receipt Date: 20240515
  Transmission Date: 20240715
  Serious: Yes (Hospitalization, Other)
  Sender: FDA-Public Use
  Company Number: CA-SA-SAC20230301000581

PATIENT
  Age: 4 Year
  Sex: Female
  Weight: 22 kg

DRUGS (23)
  1. LOVENOX [Suspect]
     Active Substance: ENOXAPARIN SODIUM
     Indication: Product used for unknown indication
     Dosage: UNK
  2. LOVENOX [Suspect]
     Active Substance: ENOXAPARIN SODIUM
     Dosage: 20 MG, Q12H
     Route: 058
  3. OTEZLA [Suspect]
     Active Substance: APREMILAST
     Indication: Product used for unknown indication
     Dosage: 2 MG, 6 DAYS
     Dates: start: 20211224, end: 20211229
  4. CANAKINUMAB [Suspect]
     Active Substance: CANAKINUMAB
     Indication: Still^s disease
     Dosage: 75 MG, QD
     Route: 058
     Dates: start: 20221026
  5. CANAKINUMAB [Suspect]
     Active Substance: CANAKINUMAB
     Indication: Still^s disease
     Dosage: 100 MG, Q4W
  6. CANAKINUMAB [Suspect]
     Active Substance: CANAKINUMAB
     Dosage: 75 MG
     Route: 058
  7. CANAKINUMAB [Suspect]
     Active Substance: CANAKINUMAB
     Dosage: UNK
     Route: 058
  8. ANAKINRA [Concomitant]
     Active Substance: ANAKINRA
     Indication: Multisystem inflammatory syndrome
     Dosage: UNK
  9. ANAKINRA [Concomitant]
     Active Substance: ANAKINRA
     Indication: Kawasaki^s disease
  10. ASPIRIN [Concomitant]
     Active Substance: ASPIRIN
     Indication: Product used for unknown indication
     Dosage: 1 DF, QD
     Route: 042
  11. CLOPIDOGREL [Concomitant]
     Active Substance: CLOPIDOGREL BISULFATE
     Indication: Product used for unknown indication
     Dosage: 1 DF, QD
     Route: 048
     Dates: start: 202201
  12. ENOXAPARIN SODIUM [Concomitant]
     Active Substance: ENOXAPARIN SODIUM
     Indication: Product used for unknown indication
     Dosage: 1 DF, QD
     Route: 058
     Dates: start: 202201
  13. LEFLUNOMIDE [Concomitant]
     Active Substance: LEFLUNOMIDE
     Indication: Product used for unknown indication
     Dosage: 1 DF, QD
     Route: 048
  14. METHYLPREDNISOLONE [Concomitant]
     Active Substance: METHYLPREDNISOLONE
     Indication: Product used for unknown indication
     Dosage: UNK
  15. PREDNISONE [Concomitant]
     Active Substance: PREDNISONE
     Indication: Product used for unknown indication
     Dosage: UNK
  16. TOCILIZUMAB [Concomitant]
     Active Substance: TOCILIZUMAB
     Indication: Product used for unknown indication
     Dosage: UNK
  17. LOVENOX [Concomitant]
     Active Substance: ENOXAPARIN SODIUM
     Indication: Product used for unknown indication
     Dosage: 1 DF, QD
     Route: 058
  18. HUMAN IMMUNOGLOBULIN G [Concomitant]
     Active Substance: HUMAN IMMUNOGLOBULIN G
     Indication: Product used for unknown indication
     Dosage: UNK
     Route: 042
     Dates: start: 20211223, end: 20211224
  19. ANAKINRA [Concomitant]
     Active Substance: ANAKINRA
     Indication: Multisystem inflammatory syndrome
     Dosage: 49.3 MG, QD
  20. ANAKINRA [Concomitant]
     Active Substance: ANAKINRA
     Indication: Kawasaki^s disease
  21. ANAKINRA [Concomitant]
     Active Substance: ANAKINRA
     Indication: Product used for unknown indication
     Dosage: UNK
  22. ANAKINRA [Concomitant]
     Active Substance: ANAKINRA
     Dosage: UNK
     Route: 058
  23. ANAKINRA [Concomitant]
     Active Substance: ANAKINRA
     Dosage: UNK
     Route: 058

REACTIONS (18)
  - Cutaneous symptom [Recovered/Resolved]
  - Arthralgia [Recovered/Resolved]
  - Abdominal discomfort [Recovered/Resolved]
  - Fatigue [Recovered/Resolved]
  - Ocular discomfort [Recovered/Resolved]
  - Malaise [Recovered/Resolved]
  - Nasopharyngitis [Recovered/Resolved]
  - Rash [Recovered/Resolved]
  - Vomiting [Recovered/Resolved]
  - Joint swelling [Recovered/Resolved]
  - Pyrexia [Recovered/Resolved]
  - Nausea [Recovered/Resolved]
  - Injection site reaction [Recovered/Resolved]
  - Headache [Recovered/Resolved]
  - Haemorrhage [Recovered/Resolved]
  - Injection site bruising [Recovered/Resolved]
  - Contusion [Recovered/Resolved]
  - Product use issue [Unknown]
